FAERS Safety Report 8536350-7 (Version None)
Quarter: 2012Q3

REPORT INFORMATION
  Report Type: 
  Country: None (occurrence: None)
  Receive Date: 20120712
  Receipt Date: 20120703
  Transmission Date: 20120928
  Serious: Yes (Hospitalization, Other)
  Sender: FDA-Public Use
  Company Number: DSA_58300_2012

PATIENT
  Age: 64 Year
  Sex: Male

DRUGS (5)
  1. IRINOTECAN HCL [Suspect]
     Indication: METASTASES TO LIVER
     Dosage: (DF)
  2. THERAPEUTIC RADIOPHARMACEUTICALS [Concomitant]
  3. NEUPOGEN [Concomitant]
  4. OXALIPLATIN [Suspect]
     Indication: METASTASES TO LIVER
     Dosage: (DF), (DF), (DF)
  5. FLUOROURACIL [Suspect]
     Indication: METASTASES TO LIVER
     Dosage: (DF), (DF), (DF)

REACTIONS (11)
  - METASTASES TO LIVER [None]
  - VARICOSE VEIN [None]
  - METASTASES TO RECTUM [None]
  - CONDITION AGGRAVATED [None]
  - GASTROINTESTINAL STOMA COMPLICATION [None]
  - POST PROCEDURAL HAEMORRHAGE [None]
  - BONE MARROW FAILURE [None]
  - VARICOSE VEIN OPERATION [None]
  - PORTAL HYPERTENSION [None]
  - DISEASE RECURRENCE [None]
  - MYELODYSPLASTIC SYNDROME [None]
